FAERS Safety Report 6288747-6 (Version None)
Quarter: 2009Q3

REPORT INFORMATION
  Report Type: 
  Country: None (occurrence: None)
  Receive Date: 20090729
  Receipt Date: 20070419
  Transmission Date: 20100115
  Serious: Yes (Hospitalization, Other)
  Sender: FDA-Public Use
  Company Number: US-ASTRAZENECA-2006UW22318

PATIENT
  Age: 33 Year
  Sex: Female
  Weight: 108 kg

DRUGS (16)
  1. SEROQUEL [Suspect]
     Indication: BIPOLAR DISORDER
     Route: 048
     Dates: start: 20020101, end: 20060101
  2. SEROQUEL [Suspect]
     Route: 048
     Dates: start: 20040716
  3. CLOZARIL [Concomitant]
  4. RISPERDAL [Concomitant]
  5. ELAVIL [Concomitant]
  6. NORVASC [Concomitant]
     Dosage: 5-12 MG
  7. KLONOPIN [Concomitant]
  8. AMBIEN [Concomitant]
  9. DEPAKOTE [Concomitant]
     Dosage: 250-500 MG
  10. ZYPREXA [Concomitant]
     Dosage: 5-15 MG
  11. LEXAPRO [Concomitant]
     Dosage: 10-20 MG
  12. GLUCOPHAGE [Concomitant]
     Dosage: 5-1000 MG
  13. AMARYL [Concomitant]
  14. ZOCOR [Concomitant]
  15. LISINOPRIL [Concomitant]
  16. LANTUS [Concomitant]

REACTIONS (9)
  - BIPOLAR DISORDER [None]
  - DELIRIUM [None]
  - DIABETES MELLITUS [None]
  - HYPERGLYCAEMIA [None]
  - MENTAL DISORDER [None]
  - PSYCHOTIC DISORDER [None]
  - SUICIDAL IDEATION [None]
  - SUICIDE ATTEMPT [None]
  - TYPE 2 DIABETES MELLITUS [None]
